FAERS Safety Report 5280216-5 (Version None)
Quarter: 2007Q1

REPORT INFORMATION
  Report Type: 
  Country: None (occurrence: None)
  Receive Date: 20070329
  Receipt Date: 20070319
  Transmission Date: 20070707
  Serious: Yes (Death)
  Sender: FDA-Public Use
  Company Number: CN-ROCHE-488678

PATIENT
  Age: 77 Year
  Sex: Female

DRUGS (1)
  1. ROCEPHIN [Suspect]
     Indication: LUNG INFECTION
     Route: 042
     Dates: start: 20061222, end: 20061222

REACTIONS (1)
  - DRUG HYPERSENSITIVITY [None]
